FAERS Safety Report 13497500 (Version 5)
Quarter: 2021Q3

REPORT INFORMATION
  Report Type: Report from Study
  Country: ES (occurrence: ES)
  Receive Date: 20170428
  Receipt Date: 20210903
  Transmission Date: 20211014
  Serious: Yes (Life-Threatening)
  Sender: FDA-Public Use
  Company Number: ES-TESARO, INC-ES-2017TSO00108

PATIENT
  Age: 60 Year
  Sex: Female
  Weight: 77.5 kg

DRUGS (4)
  1. ABRASONE [Concomitant]
     Indication: HAEMORRHOIDS
     Dosage: 1 FINGERTIP, BID
     Route: 061
     Dates: start: 20150316
  2. IBUPROFENO [Concomitant]
     Active Substance: IBUPROFEN
     Indication: NASOPHARYNGITIS
     Dosage: 600 MG, TID
     Route: 048
     Dates: start: 20160409, end: 20160410
  3. NIRAPARIB [Suspect]
     Active Substance: NIRAPARIB
     Indication: OVARIAN CANCER
     Dosage: 300 MG, QD
     Route: 048
     Dates: start: 20141002, end: 20160412
  4. OMEPRAZOLE. [Concomitant]
     Active Substance: OMEPRAZOLE
     Indication: HIATUS HERNIA
     Dosage: 20 MG, QD
     Route: 048
     Dates: start: 2009

REACTIONS (1)
  - Myelodysplastic syndrome [Not Recovered/Not Resolved]

NARRATIVE: CASE EVENT DATE: 20160505
